FAERS Safety Report 21279282 (Version 2)
Quarter: 2022Q4

REPORT INFORMATION
  Report Type: Spontaneous
  Country: DZ (occurrence: DZ)
  Receive Date: 20220901
  Receipt Date: 20221025
  Transmission Date: 20230113
  Serious: Yes (Other)
  Sender: FDA-Public Use
  Company Number: DZ-CELGENE-DZA-20201001344

PATIENT
  Age: 4 Decade
  Sex: Female

DRUGS (3)
  1. REVLIMID [Suspect]
     Active Substance: LENALIDOMIDE
     Indication: Product used for unknown indication
     Dosage: FREQUENCY TEXT: NOT PROVIDED?DURATION TEXT : 6 CYCLES
     Route: 050
     Dates: start: 2018, end: 2019
  2. REVLIMID [Suspect]
     Active Substance: LENALIDOMIDE
     Dosage: FREQUENCY TEXT: NOT PROVIDED?DURATION TEXT : 6 CYCLES
     Route: 050
     Dates: start: 2019
  3. REVLIMID [Suspect]
     Active Substance: LENALIDOMIDE
     Dosage: 10 MILLIGRAM, 21 IN 28 DAYS
     Route: 050
     Dates: end: 20200902

REACTIONS (2)
  - Exposure via body fluid [Unknown]
  - Normal newborn [Unknown]

NARRATIVE: CASE EVENT DATE: 20210318
